FAERS Safety Report 12817492 (Version 6)
Quarter: 2017Q2

REPORT INFORMATION
  Report Type: Spontaneous
  Country: RU (occurrence: RU)
  Receive Date: 20161006
  Receipt Date: 20170622
  Transmission Date: 20170830
  Serious: Yes (Hospitalization, Disabling, Other)
  Sender: FDA-Public Use
  Company Number: RU-ROCHE-1837385

PATIENT

DRUGS (1)
  1. AVASTIN [Suspect]
     Active Substance: BEVACIZUMAB
     Indication: RETINAL DETACHMENT
     Dosage: 100 MG / 4 ML
     Route: 050

REACTIONS (4)
  - Suspected transmission of an infectious agent via product [Unknown]
  - Off label use [Unknown]
  - Incorrect route of drug administration [Unknown]
  - Blindness [Recovering/Resolving]
